FAERS Safety Report 11979854 (Version 3)
Quarter: 2016Q1

REPORT INFORMATION
  Report Type: Report from Study
  Country: TR (occurrence: TR)
  Receive Date: 20160129
  Receipt Date: 20160303
  Transmission Date: 20160526
  Serious: Yes (Hospitalization)
  Sender: FDA-Public Use
  Company Number: TR-ABBVIE-16P-161-1541103-00

PATIENT
  Age: 75 Year
  Sex: Female
  Weight: 50 kg

DRUGS (2)
  1. MADOPAR HBS [Concomitant]
     Active Substance: BENSERAZIDE HYDROCHLORIDE\LEVODOPA
     Indication: PARKINSON^S DISEASE
     Dosage: 1X3
     Route: 048
     Dates: start: 2003
  2. DUODOPA [Suspect]
     Active Substance: CARBIDOPA\LEVODOPA
     Indication: PARKINSON^S DISEASE
     Dosage: MORNING DOSE: 7.8 ML CONTINUOUS DOSE: 3.7 MLEXTRA DOSE: 2.0 ML
     Route: 050
     Dates: start: 20150827, end: 20160209

REACTIONS (5)
  - General physical health deterioration [Unknown]
  - Stoma site reaction [Unknown]
  - Flatulence [Recovered/Resolved]
  - Abdominal pain upper [Recovered/Resolved]
  - Vomiting [Recovered/Resolved]

NARRATIVE: CASE EVENT DATE: 20160115
